FAERS Safety Report 9541783 (Version 2)
Quarter: 2013Q4

REPORT INFORMATION
  Report Type: Spontaneous
  Country: GB (occurrence: None)
  Receive Date: 20130918
  Receipt Date: 20131206
  Transmission Date: 20140711
  Serious: Yes (Other)
  Sender: FDA-Public Use
  Company Number: AUR-APL-2013-07577

PATIENT
  Age: 79 Year
  Sex: Male
  Weight: 87.8 kg

DRUGS (17)
  1. AMLODIPINE [Suspect]
     Indication: ANGINA PECTORIS
     Dosage: 1 IN 1 D
     Route: 048
     Dates: start: 200603
  2. AMLODIPINE [Suspect]
     Indication: CARDIAC FAILURE
     Dosage: 1 IN 1 D
     Route: 048
     Dates: start: 200603
  3. ADCAL-D3  (LEKOVIT CA) [Concomitant]
  4. ALENDRONIC ACID (ALENDRONIC ACID) [Concomitant]
  5. ASPIRIN (ACETYLSALICYLIC ACID) [Concomitant]
  6. ATENOLOL (ATENOLOL) [Concomitant]
  7. CANDESARTAN (CANDESARTAN) [Concomitant]
  8. DESLORATADINE (DESLORATADINE) [Concomitant]
  9. IMDUR (ISOSORBIDE MONONITRATE) [Concomitant]
  10. MOVICOL (POLYETHYL GLYC. W/POTAS. CHLOR./SOD. BICARB.) [Concomitant]
  11. NASONEX (MOMETASONE FUROATE) [Concomitant]
  12. NICORANDIL (NICORANDIL) [Concomitant]
  13. OILATUM (PARAFFIN, LIQUID) [Concomitant]
  14. OMEPRAZOLE (OMEPRAZOLE) [Concomitant]
  15. PARACETAMOL (PARACETAMOL) [Concomitant]
  16. PREDNISOLONE (PREDNISOLONE) [Concomitant]
  17. SIMVASTATIN (SIMVASTATIN) [Concomitant]

REACTIONS (5)
  - Cough [None]
  - Rhinitis allergic [None]
  - Constipation [None]
  - Extrapyramidal disorder [None]
  - Condition aggravated [None]
